FAERS Safety Report 10025166 (Version 2)
Quarter: 2014Q2

REPORT INFORMATION
  Report Type: Spontaneous
  Country: US (occurrence: US)
  Receive Date: 20140320
  Receipt Date: 20140421
  Transmission Date: 20141212
  Serious: Yes (Death)
  Sender: FDA-Public Use
  Company Number: US-SA-2014SA034092

PATIENT
  Age: 74 Year
  Sex: Male

DRUGS (1)
  1. RENVELA [Suspect]
     Indication: HYPERPHOSPHATAEMIA
     Dosage: DOSE: TWO TABLETS 800 MG WITH MEALS THREE TIMES A DAY AND TWO TABLETS 800 MG WITH SNACKS DAILY
     Route: 048
     Dates: end: 20140312

REACTIONS (1)
  - Death [Fatal]
